FAERS Safety Report 7892272-6 (Version None)
Quarter: 2011Q4

REPORT INFORMATION
  Report Type: 
  Country: None (occurrence: None)
  Receive Date: 20111104
  Receipt Date: 20111027
  Transmission Date: 20120403
  Serious: No
  Sender: FDA-Public Use
  Company Number: US-BIOGENIDEC-2011BI035572

PATIENT
  Age: 34 Year
  Sex: Female

DRUGS (4)
  1. TYSABRI [Suspect]
     Route: 042
     Dates: start: 20091223, end: 20101216
  2. TYSABRI [Suspect]
     Indication: MULTIPLE SCLEROSIS
     Route: 042
     Dates: start: 20110408, end: 20110812
  3. TYSABRI [Suspect]
     Route: 042
     Dates: start: 20090514, end: 20091110
  4. AVONEX [Concomitant]
     Indication: MULTIPLE SCLEROSIS
     Route: 030

REACTIONS (2)
  - INFUSION SITE HAEMATOMA [None]
  - POOR VENOUS ACCESS [None]
